FAERS Safety Report 21704848 (Version 3)
Quarter: 2022Q4

REPORT INFORMATION
  Report Type: Spontaneous
  Country: US (occurrence: US)
  Receive Date: 20221209
  Receipt Date: 20221229
  Transmission Date: 20230113
  Serious: No
  Sender: FDA-Public Use
  Company Number: US-SA-SAC20221208000206

PATIENT
  Age: 27 Year
  Sex: Female
  Weight: 70.3 kg

DRUGS (5)
  1. DUPIXENT [Suspect]
     Active Substance: DUPILUMAB
     Indication: Dermatitis atopic
     Dosage: 300 MG, QOW
     Route: 058
     Dates: start: 20221104
  2. ALBUTEROL SULFATE [Concomitant]
     Active Substance: ALBUTEROL SULFATE
     Dosage: UNK
  3. WIXELA INHUB [Concomitant]
     Active Substance: FLUTICASONE PROPIONATE\SALMETEROL XINAFOATE
     Dosage: UNK
  4. TACROLIMUS [Concomitant]
     Active Substance: TACROLIMUS
  5. KETOCONAZOLE [Concomitant]
     Active Substance: KETOCONAZOLE

REACTIONS (6)
  - Burning sensation [Recovering/Resolving]
  - Pruritus [Not Recovered/Not Resolved]
  - Erythema [Recovering/Resolving]
  - Dermatitis atopic [Not Recovered/Not Resolved]
  - Wrong technique in device usage process [Unknown]
  - Inappropriate schedule of product administration [Unknown]

NARRATIVE: CASE EVENT DATE: 20221209
